FAERS Safety Report 4290789-7 (Version None)
Quarter: 2004Q1

REPORT INFORMATION
  Report Type: 
  Country: None (occurrence: None)
  Receive Date: 20040206
  Receipt Date: 20040206
  Transmission Date: 20041129
  Serious: Yes (Hospitalization, Other)
  Sender: FDA-Public Use
  Company Number: None

PATIENT
  Age: 51 Year
  Sex: Male
  Weight: 86.1834 kg

DRUGS (3)
  1. LITHIUM CARBONATE [Suspect]
     Indication: POST-TRAUMATIC STRESS DISORDER
     Dosage: 600 MG AM, 600 MG LUNCH, 900 MG PM
  2. IBUPROFEN [Suspect]
     Indication: INFLUENZA LIKE ILLNESS
     Dosage: 600MG QD PRN AND OTC MEDS
  3. IBUPROFEN [Suspect]
     Indication: PAIN
     Dosage: 600MG QD PRN AND OTC MEDS

REACTIONS (5)
  - DEHYDRATION [None]
  - DRUG INTERACTION [None]
  - DRUG TOXICITY [None]
  - RENAL FAILURE ACUTE [None]
  - RENAL FAILURE CHRONIC [None]
